FAERS Safety Report 23586494 (Version 1)
Quarter: 2024Q1

REPORT INFORMATION
  Report Type: Spontaneous
  Country: US (occurrence: US)
  Receive Date: 20240301
  Receipt Date: 20240301
  Transmission Date: 20240409
  Serious: Yes (Hospitalization)
  Sender: FDA-Public Use
  Company Number: US-JNJFOC-20240262450

PATIENT
  Age: 39 Year
  Sex: Female

DRUGS (2)
  1. PROPULSID [Suspect]
     Active Substance: CISAPRIDE
     Indication: Product used for unknown indication
     Route: 065
  2. MOTILIUM [Concomitant]
     Active Substance: DOMPERIDONE

REACTIONS (2)
  - Pneumonia [Unknown]
  - Gastrooesophageal reflux disease [Unknown]
